FAERS Safety Report 25453728 (Version 3)
Quarter: 2025Q4

REPORT INFORMATION
  Report Type: Spontaneous
  Country: US (occurrence: US)
  Receive Date: 20250619
  Receipt Date: 20251009
  Transmission Date: 20260118
  Serious: Yes (Life-Threatening, Hospitalization, Other)
  Sender: CIPLA
  Company Number: US-MLMSERVICE-20250602-PI530122-00050-1

PATIENT

DRUGS (3)
  1. AMLODIPINE [Suspect]
     Active Substance: AMLODIPINE BESYLATE
     Dosage: 300 MILLIGRAM, 1 TOTAL (LARGE AMOUNT; 30 TABLETS OF 10 MG AMLODIPINE), INGESTED
     Route: 048
  2. QUETIAPINE [Suspect]
     Active Substance: QUETIAPINE
     Dosage: 3000 MILLIGRAM, 1 TOTAL (LARGE AMOUNT; 30 TABLETS OF 100 MG QUETIAPINE), INGESTED
     Route: 048
  3. FLUOXETINE [Suspect]
     Active Substance: FLUOXETINE HYDROCHLORIDE
     Dosage: 600 MILLIGRAM, 1 TOTAL (LARGE AMOUNT; 30 TABLETS OF 20 MG FLUOXETINE), INGESTED
     Route: 048

REACTIONS (6)
  - Intentional overdose [Unknown]
  - Suicide attempt [Unknown]
  - Blood lactic acid increased [Recovering/Resolving]
  - Vasoplegia syndrome [Recovering/Resolving]
  - Shock [Recovering/Resolving]
  - Hypotension [Recovering/Resolving]
